FAERS Safety Report 7476068-5 (Version None)
Quarter: 2011Q2

REPORT INFORMATION
  Report Type: 
  Country: None (occurrence: None)
  Receive Date: 20110512
  Receipt Date: 20110504
  Transmission Date: 20111010
  Serious: Yes (Hospitalization, Other)
  Sender: FDA-Public Use
  Company Number: FR-PFIZER INC-2011026668

PATIENT
  Age: 52 Year
  Sex: Male

DRUGS (49)
  1. VINCRISTINE SULFATE [Concomitant]
     Dosage: UNK
     Route: 042
     Dates: start: 20100816, end: 20100816
  2. VINCRISTINE SULFATE [Concomitant]
     Dosage: UNK
     Route: 042
     Dates: start: 20100830, end: 20100830
  3. ZELITREX [Concomitant]
     Dosage: 1 DF, 2X/DAY
     Route: 048
     Dates: start: 20100813, end: 20100818
  4. AZACTAM [Concomitant]
     Dosage: 1 G, 3X/DAY
     Route: 051
     Dates: start: 20100813, end: 20100821
  5. OXYNORM [Concomitant]
     Dosage: UNK
     Route: 042
     Dates: start: 20100821, end: 20100831
  6. VANCOMYCIN [Concomitant]
     Dosage: 1 G, 2X/DAY
     Route: 042
     Dates: start: 20100804, end: 20100805
  7. AMBISOME [Suspect]
     Dosage: 50 MG, ALTERNATE DAY
     Route: 042
     Dates: start: 20100813, end: 20100914
  8. TRANXENE [Concomitant]
     Dosage: UNK
     Route: 048
     Dates: start: 20100804, end: 20100812
  9. TRANXENE [Concomitant]
     Dosage: UNK
     Route: 048
     Dates: start: 20100828, end: 20100829
  10. MOPRAL [Concomitant]
     Dosage: UNK
     Route: 042
     Dates: start: 20100803, end: 20100910
  11. ACUPAN [Concomitant]
     Dosage: UNK
     Route: 042
     Dates: start: 20100804
  12. ZOVIRAX [Concomitant]
     Dosage: 500 MG, UNK
     Route: 042
     Dates: start: 20100818, end: 20100908
  13. ZOLPIDEM [Concomitant]
     Dosage: 10 MG, 1X/DAY
     Route: 048
     Dates: end: 20100910
  14. SERESTA [Concomitant]
     Dosage: 10 MG, 4X/DAY
     Dates: end: 20100911
  15. ONDANSERTRON HYDROCHLORIDE [Concomitant]
     Dosage: 8 MG, 2X/DAY
     Route: 042
     Dates: start: 20100816, end: 20100816
  16. ARACYTINE [Concomitant]
     Indication: ACUTE LYMPHOCYTIC LEUKAEMIA
     Dosage: 40 MG, UNK
     Route: 037
     Dates: start: 20100809, end: 20100826
  17. METHOTREXATE SODIUM [Concomitant]
     Indication: ACUTE LYMPHOCYTIC LEUKAEMIA
     Dosage: 15 MG, UNK
     Route: 037
     Dates: start: 20100809, end: 20100826
  18. XANAX [Concomitant]
     Dosage: UNK
     Route: 048
     Dates: start: 20100814, end: 20100828
  19. HUMALOG [Concomitant]
     Dosage: UNK
     Route: 058
     Dates: end: 20100823
  20. ONDANSERTRON HYDROCHLORIDE [Concomitant]
     Dosage: 8 MG, 2X/DAY
     Route: 042
     Dates: start: 20100809, end: 20100811
  21. VANCOMYCIN [Concomitant]
     Dosage: 1.5 G, 2X/DAY
     Route: 042
     Dates: start: 20100818, end: 20100910
  22. FASTURTEC [Concomitant]
     Dosage: UNK
     Route: 042
     Dates: start: 20100802, end: 20100803
  23. PREDNISONE [Suspect]
     Dosage: 110.4 MG/DAY
     Route: 048
     Dates: start: 20100808, end: 20100822
  24. EMEND [Suspect]
     Dosage: 125 MG/DAY
     Route: 048
     Dates: start: 20100809
  25. EMEND [Suspect]
     Dosage: 80 MG/DAY
     Route: 048
     Dates: end: 20100820
  26. VINCRISTINE SULFATE [Concomitant]
     Dosage: UNK
     Route: 042
     Dates: start: 20100809, end: 20100809
  27. VINCRISTINE SULFATE [Concomitant]
     Dosage: UNK
     Route: 042
     Dates: start: 20100823, end: 20100823
  28. GAVISCON [Concomitant]
     Dosage: 2 DF, 3X/DAY
     Route: 048
     Dates: start: 20101017
  29. OXYNORM [Concomitant]
     Dosage: UNK
     Route: 042
     Dates: end: 20100905
  30. PENTACARINAT ^AVENTIS^ [Concomitant]
     Dosage: UNK
     Dates: start: 20100812, end: 20100812
  31. PENTACARINAT ^AVENTIS^ [Concomitant]
     Dosage: UNK
     Dates: start: 20100825, end: 20100825
  32. PREDNISONE [Suspect]
     Indication: ACUTE LYMPHOCYTIC LEUKAEMIA
     Dosage: 100 MG/DAY
     Route: 048
     Dates: start: 20100802, end: 20100808
  33. SERESTA [Concomitant]
     Dosage: UNK
     Route: 048
     Dates: start: 20101017
  34. TRAMADOL HCL [Concomitant]
     Dosage: 100 MG, UNK
     Route: 042
     Dates: start: 20100801, end: 20101024
  35. VANCOMYCIN [Concomitant]
     Dosage: 1.25 G, 2X/DAY
     Dates: start: 20100813, end: 20100817
  36. CYCLOPHOSPHAMIDE [Concomitant]
     Dosage: UNK
     Route: 042
     Dates: start: 20100809, end: 20100809
  37. FASTURTEC [Concomitant]
     Dosage: UNK
     Route: 042
     Dates: start: 20100805, end: 20100806
  38. KIDROLASE [Suspect]
     Indication: ACUTE LYMPHOCYTIC LEUKAEMIA
     Dosage: 11000 IU, 1X/DAY
     Route: 042
     Dates: start: 20100828, end: 20100906
  39. SPASFON [Concomitant]
     Dosage: UNK
     Route: 042
     Dates: start: 20100804, end: 20101001
  40. GAVISCON [Concomitant]
     Dosage: 1 DF, 3X/DAY
     Route: 048
     Dates: start: 20100814, end: 20100819
  41. OXYNORM [Concomitant]
     Dosage: UNK
     Route: 042
     Dates: end: 20100908
  42. CYCLOPHOSPHAMIDE [Concomitant]
     Dosage: 550 MG, UNK
     Route: 042
     Dates: start: 20100823, end: 20100826
  43. CERUBIDIN [Concomitant]
     Dosage: UNK
     Route: 042
     Dates: start: 20100809, end: 20100811
  44. CERUBIDIN [Concomitant]
     Dosage: UNK
     Route: 042
     Dates: start: 20100823, end: 20100824
  45. LANTUS [Concomitant]
     Dosage: UNK
     Route: 058
     Dates: end: 20100908
  46. DEPO-MEDROL [Suspect]
     Indication: ACUTE LYMPHOCYTIC LEUKAEMIA
     Dosage: UNK
     Route: 037
     Dates: start: 20100809, end: 20100826
  47. HUMALOG [Concomitant]
     Dosage: UNK
     Route: 058
     Dates: start: 20101001
  48. ONDANSERTRON HYDROCHLORIDE [Concomitant]
     Dosage: 8 MG, 2X/DAY
     Route: 042
     Dates: start: 20100823, end: 20100826
  49. ATARAX [Concomitant]
     Dosage: UNK
     Route: 042
     Dates: start: 20100805, end: 20100805

REACTIONS (6)
  - COAGULOPATHY [None]
  - HEPATOCELLULAR INJURY [None]
  - CONDITION AGGRAVATED [None]
  - BONE MARROW FAILURE [None]
  - DIABETES MELLITUS INADEQUATE CONTROL [None]
  - BACTERIAL SEPSIS [None]
